FAERS Safety Report 5202794-4 (Version None)
Quarter: 2006Q4

REPORT INFORMATION
  Report Type: 
  Country: None (occurrence: None)
  Receive Date: 20061018
  Receipt Date: 20051103
  Transmission Date: 20070319
  Serious: Yes (Other)
  Sender: FDA-Public Use
  Company Number: 1463616USA

PATIENT
  Age: 67 Year
  Sex: Female

DRUGS (3)
  1. BACTRIM [Suspect]
     Indication: CYSTITIS
     Dosage: 800 MG/160 MG (ONE TABLET)
     Dates: start: 20051019, end: 20051019
  2. ENALAPRIL MALEATE [Concomitant]
  3. NASAL ALLERGY SPRAY [Concomitant]

REACTIONS (6)
  - ABDOMINAL PAIN [None]
  - ERYTHEMA [None]
  - HYPERSENSITIVITY [None]
  - NAUSEA [None]
  - RASH [None]
  - SKIN OEDEMA [None]
